FAERS Safety Report 6842026-4 (Version None)
Quarter: 2010Q3

REPORT INFORMATION
  Report Type: 
  Country: None (occurrence: None)
  Receive Date: 20100714
  Receipt Date: 20070718
  Transmission Date: 20110219
  Serious: Yes (Other)
  Sender: FDA-Public Use
  Company Number: US-PFIZER INC-2007060786

PATIENT
  Sex: Male
  Weight: 75.8 kg

DRUGS (4)
  1. CHANTIX [Suspect]
     Indication: SMOKING CESSATION THERAPY
     Dates: start: 20070601
  2. ZOCOR [Concomitant]
  3. LISINOPRIL [Concomitant]
  4. ALL OTHER THERAPEUTIC PRODUCTS [Concomitant]
     Indication: GASTROOESOPHAGEAL REFLUX DISEASE

REACTIONS (1)
  - DEPRESSION [None]
